FAERS Safety Report 5318536-8 (Version None)
Quarter: 2007Q2

REPORT INFORMATION
  Report Type: 
  Country: None (occurrence: None)
  Receive Date: 20070501
  Receipt Date: 20070423
  Transmission Date: 20071010
  Serious: Yes (Hospitalization)
  Sender: FDA-Public Use
  Company Number: 2007EN000123

PATIENT
  Age: 38 Year
  Sex: Male
  Weight: 77.1115 kg

DRUGS (3)
  1. OPANA ER [Suspect]
     Indication: PAIN
     Dosage: 20 MG; Q12H
     Dates: start: 20070401
  2. MARIJUANA [Suspect]
     Dosage: INH
     Route: 055
     Dates: start: 20070420, end: 20070420
  3. VICODIN [Concomitant]

REACTIONS (5)
  - ACCIDENTAL OVERDOSE [None]
  - CORONARY ARTERY OCCLUSION [None]
  - DEPRESSED LEVEL OF CONSCIOUSNESS [None]
  - DRUG ABUSER [None]
  - TACHYCARDIA [None]
